FAERS Safety Report 6645115-2 (Version None)
Quarter: 2010Q1

REPORT INFORMATION
  Report Type: 
  Country: None (occurrence: None)
  Receive Date: 20100322
  Receipt Date: 20100312
  Transmission Date: 20100710
  Serious: Yes (Hospitalization, Other)
  Sender: FDA-Public Use
  Company Number: CA-ABBOTT-10P-028-0633194-00

PATIENT
  Sex: Female
  Weight: 48.578 kg

DRUGS (2)
  1. HUMIRA [Suspect]
     Indication: CROHN'S DISEASE
     Route: 058
  2. HUMIRA [Suspect]
     Route: 058
     Dates: start: 20091001

REACTIONS (5)
  - ABDOMINAL ADHESIONS [None]
  - ABDOMINAL PAIN [None]
  - GASTROINTESTINAL INFLAMMATION [None]
  - INTESTINAL MASS [None]
  - INTESTINAL STENOSIS [None]
